FAERS Safety Report 12039130 (Version 1)
Quarter: 2016Q1

REPORT INFORMATION
  Report Type: Spontaneous
  Country: US (occurrence: None)
  Receive Date: 20160205
  Receipt Date: 20160205
  Transmission Date: 20160526
  Serious: Yes (Hospitalization)
  Sender: FDA-Public Use
  Company Number: None

PATIENT
  Age: 51 Year
  Sex: Female
  Weight: 85.63 kg

DRUGS (3)
  1. DOXORUBICIN HYDROCHLORIDE. [Suspect]
     Active Substance: DOXORUBICIN HYDROCHLORIDE
     Dates: end: 20160119
  2. CYCLOPHOSPHAMIDE. [Suspect]
     Active Substance: CYCLOPHOSPHAMIDE
     Dates: end: 20160119
  3. NEULASTA [Concomitant]
     Active Substance: PEGFILGRASTIM

REACTIONS (5)
  - Arthralgia [None]
  - Pulmonary embolism [None]
  - Pain [None]
  - Pain in extremity [None]
  - Deep vein thrombosis [None]

NARRATIVE: CASE EVENT DATE: 20160125
